FAERS Safety Report 6970035-3 (Version None)
Quarter: 2010Q3

REPORT INFORMATION
  Report Type: 
  Country: None (occurrence: None)
  Receive Date: 20100823
  Receipt Date: 20100622
  Transmission Date: 20110219
  Serious: No
  Sender: FDA-Public Use
  Company Number: 014319

PATIENT
  Sex: Female

DRUGS (5)
  1. CIMZIA [Suspect]
     Indication: CROHN'S DISEASE
     Dosage: (400 MG 1X/2 WEEKS SUBCUTANEOUS)
     Route: 058
     Dates: start: 20100621
  2. ZETIA [Concomitant]
  3. FOSAMAX [Concomitant]
  4. AMITRPTYLINE [Concomitant]
  5. PREDNISONE [Concomitant]

REACTIONS (1)
  - INJECTION SITE DISCOLOURATION [None]
